FAERS Safety Report 23509628 (Version 1)
Quarter: 2024Q1

REPORT INFORMATION
  Report Type: Spontaneous
  Country: FR (occurrence: FR)
  Receive Date: 20240210
  Receipt Date: 20240210
  Transmission Date: 20240409
  Serious: Yes (Other)
  Sender: FDA-Public Use
  Company Number: FR-UCBSA-2024006472

PATIENT
  Sex: Female

DRUGS (1)
  1. FINTEPLA [Suspect]
     Active Substance: FENFLURAMINE
     Indication: Severe myoclonic epilepsy of infancy
     Dosage: 2,2 MILLIGRAM PER MILLILITRE, UNK

REACTIONS (2)
  - Seizure [Not Recovered/Not Resolved]
  - Nasal polyps [Not Recovered/Not Resolved]
